FAERS Safety Report 17146191 (Version 1)
Quarter: 2019Q4

REPORT INFORMATION
  Report Type: Spontaneous
  Country: FR (occurrence: FR)
  Receive Date: 20191212
  Receipt Date: 20191212
  Transmission Date: 20200122
  Serious: Yes (Other)
  Sender: FDA-Public Use
  Company Number: FR-MYLANLABS-2019M1121316

PATIENT
  Age: 69 Year
  Sex: Male
  Weight: 80 kg

DRUGS (2)
  1. SOLUPRED                           /00016201/ [Concomitant]
     Active Substance: PREDNISOLONE
     Dosage: NON ADMINISTRE
  2. ZOLPIDEM 10 MG FILM-COATED TABLETS [Suspect]
     Active Substance: ZOLPIDEM TARTRATE
     Indication: OROPHARYNGEAL PAIN
     Dosage: 20 MILLIGRAM, TOTAL
     Route: 048
     Dates: start: 20191010

REACTIONS (4)
  - Hallucination, visual [Recovered/Resolved]
  - Somnolence [Recovered/Resolved]
  - Medication error [Recovered/Resolved]
  - Wrong product administered [Recovered/Resolved]

NARRATIVE: CASE EVENT DATE: 20191010
